FAERS Safety Report 24263890 (Version 1)
Quarter: 2024Q3

REPORT INFORMATION
  Report Type: Spontaneous
  Country: US (occurrence: US)
  Receive Date: 20240829
  Receipt Date: 20240829
  Transmission Date: 20241016
  Serious: Yes (Other)
  Sender: SUNOVION
  Company Number: US-SUMITOMO PHARMA SWITZERLAND GMBH-2024SPA001759

PATIENT

DRUGS (1)
  1. GEMTESA [Suspect]
     Active Substance: VIBEGRON
     Dosage: UNK, QD
     Route: 048
     Dates: start: 20240817

REACTIONS (3)
  - Neoplasm malignant [Unknown]
  - Incontinence [Unknown]
  - Cough [Recovering/Resolving]
